FAERS Safety Report 17336423 (Version 1)
Quarter: 2020Q1

REPORT INFORMATION
  Report Type: Spontaneous
  Country: PT (occurrence: ES)
  Receive Date: 20200128
  Receipt Date: 20200128
  Transmission Date: 20200409
  Serious: Yes (Other)
  Sender: FDA-Public Use
  Company Number: PT-SUNOVION-2019SUN005693

PATIENT

DRUGS (4)
  1. ZEBINIX [Suspect]
     Active Substance: ESLICARBAZEPINE ACETATE
     Dosage: 1600 MILLIGRAM, DAILY
     Route: 065
     Dates: start: 201802
  2. ZEBINIX [Suspect]
     Active Substance: ESLICARBAZEPINE ACETATE
     Indication: PARTIAL SEIZURES
     Dosage: UP TO 800 MILLIGRAM, DAILY
     Route: 065
     Dates: start: 201701, end: 201709
  3. ZEBINIX [Suspect]
     Active Substance: ESLICARBAZEPINE ACETATE
     Dosage: 1200 MILLIGRAM, DAILY
     Route: 065
     Dates: start: 201709, end: 201802
  4. LEVETIRACETAM. [Concomitant]
     Active Substance: LEVETIRACETAM
     Dosage: 3000 MG / DAY
     Route: 065

REACTIONS (4)
  - Off label use [Unknown]
  - Focal dyscognitive seizures [Recovered/Resolved]
  - Seizure [Recovered/Resolved]
  - Overdose [Unknown]

NARRATIVE: CASE EVENT DATE: 2017
